FAERS Safety Report 10335859 (Version 1)
Quarter: 2014Q3

REPORT INFORMATION
  Report Type: Spontaneous
  Country: US (occurrence: US)
  Receive Date: 20140723
  Receipt Date: 20140723
  Transmission Date: 20150326
  Serious: No
  Sender: FDA-Public Use
  Company Number: US-BRISTOL-MYERS SQUIBB COMPANY-19163559

PATIENT
  Sex: Male

DRUGS (5)
  1. TRIAMTERENE + HCTZ [Concomitant]
  2. DOXAZOSIN MESYLATE. [Concomitant]
     Active Substance: DOXAZOSIN MESYLATE
  3. COUMADIN [Suspect]
     Active Substance: WARFARIN SODIUM
  4. LIPITOR [Concomitant]
     Active Substance: ATORVASTATIN CALCIUM
  5. ATENOLOL. [Concomitant]
     Active Substance: ATENOLOL
     Dosage: RECENTLY TOLD TO CUT IT IN HALF

REACTIONS (1)
  - International normalised ratio fluctuation [Unknown]
